FAERS Safety Report 9531688 (Version 4)
Quarter: 2014Q2

REPORT INFORMATION
  Report Type: Spontaneous
  Country: US (occurrence: US)
  Receive Date: 20130918
  Receipt Date: 20140501
  Transmission Date: 20141212
  Serious: Yes (Hospitalization, Other)
  Sender: FDA-Public Use
  Company Number: US-MERCK-1309USA005417

PATIENT
  Sex: Female
  Weight: 53.52 kg

DRUGS (4)
  1. FOSAMAX [Suspect]
     Indication: SENILE OSTEOPOROSIS
     Dosage: 70 MG, QW
     Route: 048
     Dates: start: 200302, end: 20090120
  2. ALENDRONATE SODIUM [Suspect]
     Indication: OSTEOPOROSIS
     Dosage: 70 MG, UNK
     Dates: start: 20090121, end: 20110611
  3. CALCIUM (UNSPECIFIED) [Concomitant]
     Indication: OSTEOPENIA
     Dosage: 1.2 G, QD
  4. VITAMIN D (UNSPECIFIED) [Concomitant]
     Indication: OSTEOPENIA
     Dosage: 800 IU, UNK

REACTIONS (28)
  - Femoral neck fracture [Recovered/Resolved]
  - Open reduction of fracture [Unknown]
  - Chest pain [Unknown]
  - Implantable defibrillator insertion [Unknown]
  - Low turnover osteopathy [Unknown]
  - Hypertension [Unknown]
  - Skin lesion [Unknown]
  - Bacterial infection [Unknown]
  - Herpes zoster [Unknown]
  - Inappropriate schedule of drug administration [Unknown]
  - Oophorectomy [Unknown]
  - Hand fracture [Unknown]
  - Heart valve incompetence [Unknown]
  - Hyponatraemia [Unknown]
  - Haemorrhagic anaemia [Unknown]
  - Hyperglycaemia [Unknown]
  - Thrombocytopenia [Unknown]
  - Appendicectomy [Unknown]
  - Pulmonary hypertension [Unknown]
  - Osteoarthritis [Unknown]
  - Nocturia [Unknown]
  - Eye disorder [Unknown]
  - Mucosal atrophy [Unknown]
  - Hysterectomy [Unknown]
  - Cervicectomy [Unknown]
  - Gastrooesophageal reflux disease [Unknown]
  - Arthralgia [Unknown]
  - Vitamin D deficiency [Unknown]
